FAERS Safety Report 5522738-5 (Version None)
Quarter: 2007Q4

REPORT INFORMATION
  Report Type: 
  Country: None (occurrence: None)
  Receive Date: 20071120
  Receipt Date: 20071030
  Transmission Date: 20080405
  Serious: No
  Sender: FDA-Public Use
  Company Number: US-BOEHRINGER INGELHEIM PHARMACEUTICALS, INC.-2007-BP-23621BP

PATIENT
  Age: 79 Year
  Sex: Male

DRUGS (13)
  1. FLOMAX [Suspect]
     Indication: BENIGN PROSTATIC HYPERPLASIA
     Route: 048
     Dates: start: 20051001, end: 20071025
  2. FLOMAX [Suspect]
     Route: 048
     Dates: start: 20071025
  3. NIASPAN [Concomitant]
     Indication: BLOOD CHOLESTEROL INCREASED
  4. COREG [Concomitant]
     Indication: HYPERTENSION
  5. ZESTORETIC [Concomitant]
     Indication: HYPERTENSION
  6. LASIX [Concomitant]
     Indication: HYPERTENSION
  7. PREVACID [Concomitant]
     Indication: GASTROOESOPHAGEAL REFLUX DISEASE
  8. OMEGA 3 FISH OIL [Concomitant]
     Indication: BLOOD CHOLESTEROL INCREASED
  9. POTASSIUM CHLORIDE [Concomitant]
     Indication: MINERAL SUPPLEMENTATION
  10. PLAVIX [Concomitant]
     Indication: CARDIAC DISORDER
  11. PLAVIX [Concomitant]
     Indication: ANTICOAGULANT THERAPY
  12. ANDROGEL [Concomitant]
     Indication: HORMONE REPLACEMENT THERAPY
  13. VIAGRA [Concomitant]
     Indication: ERECTILE DYSFUNCTION

REACTIONS (2)
  - URINE FLOW DECREASED [None]
  - VISION BLURRED [None]
